FAERS Safety Report 9119861 (Version 2)
Quarter: 2013Q1

REPORT INFORMATION
  Report Type: Spontaneous
  Country: JP (occurrence: JP)
  Receive Date: 20130226
  Receipt Date: 20130307
  Transmission Date: 20140127
  Serious: Yes (Death)
  Sender: FDA-Public Use
  Company Number: JP-ASTRAZENECA-2013SE12382

PATIENT
  Sex: Female

DRUGS (7)
  1. MEROPEN [Suspect]
     Indication: BACTERIAL INFECTION
     Route: 042
  2. MEROPEN [Suspect]
     Indication: FUNGAL INFECTION
     Route: 042
  3. AMBISOME [Suspect]
     Indication: BACTERIAL INFECTION
     Route: 065
  4. AMBISOME [Suspect]
     Indication: FUNGAL INFECTION
     Route: 065
  5. RIFAMPICIN [Suspect]
     Route: 048
  6. VANCOMYCIN HYDROCHLORIDE [Suspect]
     Route: 065
  7. UNSPECIFIED [Suspect]
     Route: 065

REACTIONS (3)
  - Death [Fatal]
  - Rash [Not Recovered/Not Resolved]
  - Renal disorder [Not Recovered/Not Resolved]
